FAERS Safety Report 6256134-2 (Version None)
Quarter: 2009Q3

REPORT INFORMATION
  Report Type: 
  Country: None (occurrence: None)
  Receive Date: 20090706
  Receipt Date: 20090623
  Transmission Date: 20100115
  Serious: Yes (Other)
  Sender: FDA-Public Use
  Company Number: PHEH2006US12162

PATIENT
  Sex: Female

DRUGS (1)
  1. AREDIA [Suspect]
     Indication: RESORPTION BONE INCREASED
     Dosage: UNK

REACTIONS (22)
  - ANXIETY [None]
  - BONE DISORDER [None]
  - CATARACT [None]
  - CELLULITIS [None]
  - EXCESSIVE GRANULATION TISSUE [None]
  - GINGIVAL EROSION [None]
  - HAEMATOCRIT DECREASED [None]
  - HAEMOGLOBIN DECREASED [None]
  - HYPERBARIC OXYGEN THERAPY [None]
  - IMPAIRED HEALING [None]
  - INCISIONAL DRAINAGE [None]
  - INJURY [None]
  - ORAL CAVITY FISTULA [None]
  - OSTEOMYELITIS [None]
  - OSTEONECROSIS [None]
  - PAIN [None]
  - PHYSICAL DISABILITY [None]
  - SEQUESTRECTOMY [None]
  - SWELLING FACE [None]
  - TOOTH EXTRACTION [None]
  - TRANSFUSION [None]
  - WOUND DEHISCENCE [None]
